FAERS Safety Report 6208285-6 (Version None)
Quarter: 2009Q2

REPORT INFORMATION
  Report Type: 
  Country: None (occurrence: None)
  Receive Date: 20090529
  Receipt Date: 20090519
  Transmission Date: 20091009
  Serious: Yes (Hospitalization)
  Sender: FDA-Public Use
  Company Number: US-TEVA-195612USA

PATIENT
  Age: 38 Year
  Sex: Male

DRUGS (3)
  1. DIDANOSINE DELAYED RELEASE CAPSULES 200MG, 250MG, 400MG [Suspect]
     Indication: ANTIRETROVIRAL THERAPY
     Dosage: DAILY
  2. TENOFOVIR DISOPROXIL FUMARATE [Interacting]
     Indication: ANTIRETROVIRAL THERAPY
  3. RITONAVIR-BOOSTED FOSAMPRENAVIR [Concomitant]
     Indication: ANTIRETROVIRAL THERAPY

REACTIONS (2)
  - DIABETES INSIPIDUS [None]
  - FANCONI SYNDROME [None]
